FAERS Safety Report 5166155-9 (Version None)
Quarter: 2006Q4

REPORT INFORMATION
  Report Type: 
  Country: None (occurrence: None)
  Receive Date: 20061129
  Receipt Date: 20061120
  Transmission Date: 20070319
  Serious: Yes (Other)
  Sender: FDA-Public Use
  Company Number: 2006144054

PATIENT
  Age: 75 Year
  Sex: Male

DRUGS (3)
  1. NORVASC [Suspect]
  2. TOPROL-XL [Suspect]
  3. PLAVIX [Suspect]

REACTIONS (2)
  - CARDIAC DISORDER [None]
  - CORONARY ARTERY DISEASE [None]
